FAERS Safety Report 15704677 (Version 1)
Quarter: 2018Q4

REPORT INFORMATION
  Report Type: Spontaneous
  Country: US (occurrence: US)
  Receive Date: 20181127
  Receipt Date: 20181127
  Transmission Date: 20190205
  Serious: No
  Sender: FDA-Public Use
  Company Number: None

PATIENT
  Age: 69 Year
  Sex: Female
  Weight: 56.7 kg

DRUGS (2)
  1. BAYER ASPIRIN [Concomitant]
     Active Substance: ASPIRIN
  2. NORVASC [Suspect]
     Active Substance: AMLODIPINE BESYLATE
     Indication: HYPERTENSION
     Dosage: ?          OTHER STRENGTH:2.5MG/90 TABS ;QUANTITY:2.5 MG MILLIGRAM(S);?
     Route: 048
     Dates: start: 20180910, end: 20180911

REACTIONS (7)
  - Burning sensation [None]
  - Product physical issue [None]
  - Suspected product contamination [None]
  - Back pain [None]
  - Headache [None]
  - Asthenia [None]
  - Blood pressure increased [None]

NARRATIVE: CASE EVENT DATE: 20180910
